FAERS Safety Report 14119751 (Version 1)
Quarter: 2017Q4

REPORT INFORMATION
  Report Type: Spontaneous
  Country: GB (occurrence: GB)
  Receive Date: 20171024
  Receipt Date: 20171024
  Transmission Date: 20180321
  Serious: Yes (Other)
  Sender: FDA-Public Use
  Company Number: PHFR2017GB008254

PATIENT
  Age: 45 Year
  Sex: Female
  Weight: 80 kg

DRUGS (3)
  1. MAXIDEX [Suspect]
     Active Substance: DEXAMETHASONE
     Dosage: 1 GTT, QID
     Route: 047
     Dates: start: 20170927, end: 20171002
  2. IBUPROFEN. [Concomitant]
     Active Substance: IBUPROFEN
     Indication: PRODUCT USED FOR UNKNOWN INDICATION
     Route: 065
  3. MAXIDEX [Suspect]
     Active Substance: DEXAMETHASONE
     Indication: CONJUNCTIVITIS VIRAL
     Dosage: 1 GTT, 6QD
     Route: 047
     Dates: start: 20170922, end: 20170926

REACTIONS (4)
  - Eye pain [Recovered/Resolved]
  - Photophobia [Recovered/Resolved]
  - Eye swelling [Recovered/Resolved]
  - Lacrimation increased [Recovered/Resolved]

NARRATIVE: CASE EVENT DATE: 20170922
